FAERS Safety Report 4866710-7 (Version None)
Quarter: 2005Q4

REPORT INFORMATION
  Report Type: 
  Country: None (occurrence: None)
  Receive Date: 20051221
  Receipt Date: 20051215
  Transmission Date: 20060501
  Serious: Yes (Hospitalization)
  Sender: FDA-Public Use
  Company Number: 2005AD000125

PATIENT
  Age: 50 Year
  Sex: Male

DRUGS (5)
  1. KEFLEX [Suspect]
     Indication: DIVERTICULITIS
     Dosage: 500 MG;
     Dates: start: 20051122
  2. ISOPHANE INSULIN [Concomitant]
  3. GLUCOVANCE [Concomitant]
  4. COVERSYL /BEL/ [Concomitant]
  5. SIMVASTATIN [Concomitant]

REACTIONS (5)
  - DIABETES MELLITUS INADEQUATE CONTROL [None]
  - FATIGUE [None]
  - MALAISE [None]
  - RASH [None]
  - SWELLING FACE [None]
